FAERS Safety Report 7036753-6 (Version None)
Quarter: 2010Q4

REPORT INFORMATION
  Report Type: 
  Country: None (occurrence: None)
  Receive Date: 20101011
  Receipt Date: 20100928
  Transmission Date: 20110411
  Serious: Yes (Hospitalization, Other)
  Sender: FDA-Public Use
  Company Number: US-ELI_LILLY_AND_COMPANY-US201006000289

PATIENT
  Sex: Male
  Weight: 170.52 kg

DRUGS (14)
  1. HUMATROPE [Suspect]
     Indication: GROWTH HORMONE DEFICIENCY
     Dosage: 2 MG, DAILY (1/D)
     Dates: start: 20090710
  2. BYETTA [Concomitant]
     Indication: TYPE 2 DIABETES MELLITUS
     Dosage: 5 UG, 2/D
     Route: 058
     Dates: start: 20080208, end: 20080404
  3. BYETTA [Concomitant]
     Dosage: 10 UG, 2/D
     Dates: start: 20080404
  4. FLOMAX [Concomitant]
     Dosage: 0.4 MG, DAILY (1/D)
     Route: 048
  5. TARKA [Concomitant]
     Dosage: 180 MG, DAILY (1/D)
     Route: 048
  6. LOVAZA [Concomitant]
  7. GLUMETZA [Concomitant]
     Dosage: UNK, 2/D
     Route: 048
  8. NEXIUM [Concomitant]
     Dosage: 40 MG, DAILY (1/D)
     Route: 048
  9. DIOVAN HCT [Concomitant]
     Dosage: 1 D/F, DAILY (1/D)
     Route: 048
  10. ZYRTEC [Concomitant]
     Dosage: 10 MG, DAILY (1/D)
     Route: 048
  11. THYROID TAB [Concomitant]
  12. ACTOS [Concomitant]
  13. REPLENS [Concomitant]
  14. HUMULIN R [Concomitant]

REACTIONS (3)
  - ARTHROPOD BITE [None]
  - CELLULITIS [None]
  - RENAL FAILURE CHRONIC [None]
